FAERS Safety Report 8207014-4 (Version None)
Quarter: 2012Q1

REPORT INFORMATION
  Report Type: 
  Country: None (occurrence: None)
  Receive Date: 20120314
  Receipt Date: 20120306
  Transmission Date: 20120608
  Serious: Yes (Other)
  Sender: FDA-Public Use
  Company Number: US-JNJFOC-20120305798

PATIENT

DRUGS (3)
  1. NEUPOGEN [Concomitant]
     Route: 065
  2. IDARUBICIN HCL [Suspect]
     Indication: ACUTE MYELOID LEUKAEMIA
     Route: 041
  3. CLADRIBINE [Suspect]
     Indication: ACUTE MYELOID LEUKAEMIA
     Route: 041

REACTIONS (6)
  - INFECTION [None]
  - HAEMATOTOXICITY [None]
  - GASTROINTESTINAL TOXICITY [None]
  - PULMONARY TOXICITY [None]
  - HEPATOTOXICITY [None]
  - STOMATITIS [None]
